FAERS Safety Report 6442695-7 (Version None)
Quarter: 2009Q4

REPORT INFORMATION
  Report Type: 
  Country: None (occurrence: None)
  Receive Date: 20091117
  Receipt Date: 20091109
  Transmission Date: 20100525
  Serious: Yes (Hospitalization)
  Sender: FDA-Public Use
  Company Number: US-ROCHE-661591

PATIENT
  Sex: Female
  Weight: 83 kg

DRUGS (1)
  1. CAPECITABINE [Suspect]
     Indication: BREAST CANCER
     Route: 048
     Dates: start: 20090701, end: 20090914

REACTIONS (2)
  - BONE DISORDER [None]
  - PULMONARY OEDEMA [None]
